FAERS Safety Report 9402462 (Version 1)
Quarter: 2013Q3

REPORT INFORMATION
  Report Type: Spontaneous
  Country: IT (occurrence: IT)
  Receive Date: 20130716
  Receipt Date: 20130716
  Transmission Date: 20140515
  Serious: Yes (Hospitalization)
  Sender: FDA-Public Use
  Company Number: IT-SANOFI-AVENTIS-2013SA069111

PATIENT
  Age: 94 Year
  Sex: Male

DRUGS (6)
  1. TRENTAL [Suspect]
     Indication: CARDIAC FAILURE
     Route: 048
     Dates: start: 20120308, end: 20120311
  2. CLEXANE [Suspect]
     Indication: CARDIAC FAILURE
     Route: 065
     Dates: start: 20120308
  3. CARDIRENE [Suspect]
     Indication: CARDIAC FAILURE
     Route: 048
     Dates: start: 20120308, end: 20120311
  4. LASIX [Concomitant]
     Dosage: STRENGTH: 500 MG
  5. VENITRIN [Concomitant]
     Dosage: STRENGTH: 10 MG/24 H, FORM: PATCH
     Route: 062
  6. TOTALIP [Concomitant]
     Dosage: STRENGTH: 20MG

REACTIONS (1)
  - Gastric ulcer haemorrhage [Recovered/Resolved]
